FAERS Safety Report 9123743 (Version 1)
Quarter: 2013Q1

REPORT INFORMATION
  Report Type: Spontaneous
  Country: BR (occurrence: BR)
  Receive Date: 20130227
  Receipt Date: 20130227
  Transmission Date: 20140127
  Serious: Yes (Other)
  Sender: FDA-Public Use
  Company Number: BR-ROCHE-1195739

PATIENT
  Age: 58 Year
  Sex: Female

DRUGS (2)
  1. AVASTIN [Suspect]
     Indication: GLIOBLASTOMA
     Route: 065
  2. TEMODAL [Concomitant]

REACTIONS (1)
  - Neoplasm [Not Recovered/Not Resolved]
